FAERS Safety Report 4793564-X (Version None)
Quarter: 2005Q4

REPORT INFORMATION
  Report Type: 
  Country: None (occurrence: None)
  Receive Date: 20051011
  Receipt Date: 20050930
  Transmission Date: 20060501
  Serious: Yes (Other)
  Sender: FDA-Public Use
  Company Number: BE-JNJFOC-20050904084

PATIENT
  Sex: Female
  Weight: 56 kg

DRUGS (2)
  1. TOPAMAX [Suspect]
     Indication: EPILEPSY
     Dosage: 50MG AND 75MG
     Route: 048
  2. DEPAKENE [Concomitant]
     Route: 065

REACTIONS (2)
  - ASTHENIA [None]
  - WEIGHT DECREASED [None]
